FAERS Safety Report 4690086-1 (Version None)
Quarter: 2005Q2

REPORT INFORMATION
  Report Type: 
  Country: None (occurrence: None)
  Receive Date: 20050614
  Receipt Date: 20050530
  Transmission Date: 20051028
  Serious: Yes (Death)
  Sender: FDA-Public Use
  Company Number: BRO-008716

PATIENT
  Age: 76 Year
  Sex: Male

DRUGS (2)
  1. IOPAMIDOL-300 [Suspect]
     Indication: SPINAL MYELOGRAM
     Dosage: 8 ML, IT
     Dates: start: 20050425, end: 20050425
  2. IOPAMIDOL-300 [Suspect]
     Indication: SPONDYLOLISTHESIS
     Dosage: 8 ML, IT
     Dates: start: 20050425, end: 20050425

REACTIONS (2)
  - DYSPNOEA [None]
  - SCIATICA [None]
